FAERS Safety Report 24765192 (Version 2)
Quarter: 2025Q1

REPORT INFORMATION
  Report Type: Report from Study
  Country: JP (occurrence: JP)
  Receive Date: 20241223
  Receipt Date: 20250205
  Transmission Date: 20250409
  Serious: Yes (Other)
  Sender: AKEBIA THERAPEUTICS
  Company Number: JP-MTPC-MTPC2024-0025352

PATIENT
  Age: 59 Year
  Sex: Male
  Weight: 76 kg

DRUGS (24)
  1. VADADUSTAT [Suspect]
     Active Substance: VADADUSTAT
     Indication: Nephrogenic anaemia
     Dosage: 300 MILLIGRAM, QD
     Route: 048
     Dates: start: 20220922, end: 20221117
  2. VADADUSTAT [Suspect]
     Active Substance: VADADUSTAT
     Dosage: 450 MILLIGRAM, QD
     Route: 048
     Dates: start: 20221118, end: 20230719
  3. VADADUSTAT [Suspect]
     Active Substance: VADADUSTAT
     Dosage: 300 MILLIGRAM, QD
     Route: 048
     Dates: start: 20230720, end: 20230816
  4. VADADUSTAT [Suspect]
     Active Substance: VADADUSTAT
     Dosage: 150 MILLIGRAM, QD
     Route: 048
     Dates: start: 20230817, end: 20240517
  5. FERRIC CITRATE ANHYDROUS [Concomitant]
     Active Substance: FERRIC CITRATE ANHYDROUS
     Indication: Product used for unknown indication
     Dosage: 750 MILLIGRAM, QD
     Route: 048
     Dates: start: 20230914
  6. DAPRODUSTAT [Concomitant]
     Active Substance: DAPRODUSTAT
     Indication: Nephrogenic anaemia
     Dosage: 1 MILLIGRAM, QD
     Route: 048
     Dates: end: 20220630
  7. DAPRODUSTAT [Concomitant]
     Active Substance: DAPRODUSTAT
     Dosage: 2 MILLIGRAM, QD
     Route: 048
     Dates: start: 20220701, end: 20220825
  8. DAPRODUSTAT [Concomitant]
     Active Substance: DAPRODUSTAT
     Dosage: 3 MILLIGRAM, QD
     Route: 048
     Dates: start: 20220826, end: 20220921
  9. ENTRESTO [Concomitant]
     Active Substance: SACUBITRIL\VALSARTAN
     Indication: Product used for unknown indication
     Dosage: 400 MILLIGRAM, QD
     Route: 048
     Dates: end: 20230810
  10. ENTRESTO [Concomitant]
     Active Substance: SACUBITRIL\VALSARTAN
     Dosage: 100 MILLIGRAM, QD
     Route: 048
     Dates: start: 20230811
  11. CARDENALIN [Concomitant]
     Active Substance: DOXAZOSIN MESYLATE
     Indication: Product used for unknown indication
     Dosage: 4 MILLIGRAM, QD
     Route: 048
     Dates: start: 20220826, end: 20230307
  12. CARDENALIN [Concomitant]
     Active Substance: DOXAZOSIN MESYLATE
     Dosage: 8 MILLIGRAM, QD
     Route: 048
     Dates: start: 20230308, end: 20230608
  13. CARDENALIN [Concomitant]
     Active Substance: DOXAZOSIN MESYLATE
     Dosage: 4 MILLIGRAM, QD
     Route: 048
     Dates: start: 20230609, end: 20230810
  14. CARDENALIN [Concomitant]
     Active Substance: DOXAZOSIN MESYLATE
     Dosage: 2 MILLIGRAM, QD
     Route: 048
     Dates: start: 20230811
  15. BISOPROLOL FUMARATE [Concomitant]
     Active Substance: BISOPROLOL FUMARATE
     Indication: Product used for unknown indication
     Dosage: 1 DOSAGE FORM, QD
     Route: 048
  16. ADALAT [Concomitant]
     Active Substance: NIFEDIPINE
     Indication: Product used for unknown indication
     Dosage: 60 MILLIGRAM, QD
     Route: 048
     Dates: end: 20230608
  17. ADALAT [Concomitant]
     Active Substance: NIFEDIPINE
     Dosage: 40 MILLIGRAM, QD
     Route: 048
  18. P TOL [SUCROFERRIC OXYHYDROXIDE] [Concomitant]
     Indication: Product used for unknown indication
     Dosage: 250 MILLIGRAM, QD
     Route: 048
     Dates: start: 20220826, end: 20220921
  19. P TOL [SUCROFERRIC OXYHYDROXIDE] [Concomitant]
     Dosage: 500 MILLIGRAM, QD
     Route: 048
     Dates: start: 20220922, end: 20230220
  20. P TOL [SUCROFERRIC OXYHYDROXIDE] [Concomitant]
     Dosage: 750 MILLIGRAM, QD
     Route: 048
     Dates: start: 20230221, end: 20230913
  21. EVOCALCET [Concomitant]
     Active Substance: EVOCALCET
     Indication: Illness
     Dosage: 4 MILLIGRAM, QD
     Route: 048
  22. FUROSEMIDE [Concomitant]
     Active Substance: FUROSEMIDE
     Indication: Illness
     Dosage: 20 MILLIGRAM, QD
     Route: 048
     Dates: end: 20230914
  23. FUROSEMIDE [Concomitant]
     Active Substance: FUROSEMIDE
     Dosage: 10 MILLIGRAM, QD
     Route: 048
     Dates: start: 20230915
  24. TAMSULOSIN HYDROCHLORIDE [Concomitant]
     Active Substance: TAMSULOSIN HYDROCHLORIDE
     Indication: Illness
     Dosage: 0.2 MILLIGRAM, QD
     Route: 048

REACTIONS (1)
  - Retinal vein occlusion [Not Recovered/Not Resolved]

NARRATIVE: CASE EVENT DATE: 20240515
